FAERS Safety Report 8331430-3 (Version None)
Quarter: 2012Q2

REPORT INFORMATION
  Report Type: 
  Country: None (occurrence: None)
  Receive Date: 20120502
  Receipt Date: 20120417
  Transmission Date: 20120825
  Serious: No
  Sender: FDA-Public Use
  Company Number: US-AMGEN-USASP2012015537

PATIENT
  Age: 32 Year
  Sex: Female

DRUGS (4)
  1. LEXAPRO [Concomitant]
     Indication: DEPRESSION
     Dosage: UNK
  2. ENBREL [Suspect]
     Indication: ANKYLOSING SPONDYLITIS
     Dosage: 25 MG, 2 TIMES/WK
     Route: 058
     Dates: start: 20090201, end: 20120201
  3. VICODIN [Concomitant]
     Indication: ANKYLOSING SPONDYLITIS
     Dosage: UNK
  4. AMBIEN [Concomitant]
     Indication: INSOMNIA
     Dosage: UNK, QHS

REACTIONS (1)
  - RASH [None]
